FAERS Safety Report 24908661 (Version 1)
Quarter: 2025Q1

REPORT INFORMATION
  Report Type: Spontaneous
  Country: US (occurrence: US)
  Receive Date: 20250131
  Receipt Date: 20250131
  Transmission Date: 20250409
  Serious: Yes (Other)
  Sender: SANOFI AVENTIS
  Company Number: US-SA-2025SA028458

PATIENT
  Age: 31 Year
  Sex: Female
  Weight: 78.18 kg

DRUGS (4)
  1. DUPIXENT [Suspect]
     Active Substance: DUPILUMAB
     Indication: Eosinophilic oesophagitis
     Dosage: 300 MG, QW
     Route: 058
     Dates: start: 202403
  2. OMEPRAZOLE [Concomitant]
     Active Substance: OMEPRAZOLE
  3. BUSPIRONE HCL [Concomitant]
     Active Substance: BUSPIRONE HYDROCHLORIDE
  4. PROBIOTIC 10 BILLION DAILY MAINTENANCE [Concomitant]

REACTIONS (7)
  - Nephrolithiasis [Unknown]
  - Injection site warmth [Unknown]
  - Headache [Unknown]
  - Dyspepsia [Recovered/Resolved]
  - Toothache [Unknown]
  - Eosinophilic oesophagitis [Recovering/Resolving]
  - Injection site pain [Unknown]

NARRATIVE: CASE EVENT DATE: 20240101
